FAERS Safety Report 5844560-2 (Version None)
Quarter: 2008Q3

REPORT INFORMATION
  Report Type: 
  Country: None (occurrence: None)
  Receive Date: 20080814
  Receipt Date: 20080813
  Transmission Date: 20090109
  Serious: Yes (Life-Threatening, Hospitalization)
  Sender: FDA-Public Use
  Company Number: PHHO2001ES08806

PATIENT
  Sex: Male
  Weight: 87 kg

DRUGS (7)
  1. PLACEBO PLACEBO [Suspect]
     Dosage: UNK
     Route: 048
     Dates: start: 20000403, end: 20011023
  2. PLACEBO PLACEBO [Suspect]
     Dosage: NO TREATMENT
     Dates: start: 20011024, end: 20011126
  3. PLACEBO PLACEBO [Suspect]
     Dosage: UNK
     Route: 048
     Dates: start: 20011127
  4. ATROVENT [Suspect]
     Indication: PNEUMONIA
     Dates: start: 20011014
  5. TERBASMIN [Suspect]
     Dates: start: 20011014
  6. CAPOTEN [Concomitant]
     Indication: HYPERTENSION
  7. UNIKET [Concomitant]

REACTIONS (1)
  - VENTRICULAR TACHYCARDIA [None]
